FAERS Safety Report 16586579 (Version 5)
Quarter: 2019Q3

REPORT INFORMATION
  Report Type: Report from Study
  Country: TH (occurrence: TH)
  Receive Date: 20190717
  Receipt Date: 20190829
  Transmission Date: 20191004
  Serious: Yes (Other)
  Sender: FDA-Public Use
  Company Number: TH-ASTRAZENECA-2019SE98907

PATIENT
  Age: 27401 Day
  Sex: Male

DRUGS (37)
  1. DANVATIRSEN [Suspect]
     Active Substance: DANVATIRSEN
     Indication: NON-SMALL CELL LUNG CANCER STAGE IV
     Dosage: 200 MG
     Route: 042
     Dates: start: 20190619, end: 20190619
  2. PEMETREXED. [Suspect]
     Active Substance: PEMETREXED
     Indication: NON-SMALL CELL LUNG CANCER STAGE IV
     Dosage: 800 MG
     Route: 065
     Dates: start: 20190820, end: 20190820
  3. LOSARTAN. [Concomitant]
     Active Substance: LOSARTAN
     Indication: HYPERTENSION
     Route: 048
     Dates: start: 20190329
  4. FOLIC ACID. [Concomitant]
     Active Substance: FOLIC ACID
     Indication: SUPPLEMENTATION THERAPY
     Route: 048
     Dates: start: 20190423
  5. DANVATIRSEN [Suspect]
     Active Substance: DANVATIRSEN
     Indication: NON-SMALL CELL LUNG CANCER STAGE IV
     Dosage: 200 MG
     Route: 042
     Dates: start: 20190801, end: 20190801
  6. PEMETREXED. [Suspect]
     Active Substance: PEMETREXED
     Indication: NON-SMALL CELL LUNG CANCER STAGE IV
     Dosage: 500 MG
     Route: 065
     Dates: start: 20190619, end: 20190619
  7. PEMETREXED. [Suspect]
     Active Substance: PEMETREXED
     Indication: NON-SMALL CELL LUNG CANCER STAGE IV
     Dosage: 815 MG
     Route: 065
     Dates: start: 20190730, end: 20190730
  8. CARBOPLATIN. [Suspect]
     Active Substance: CARBOPLATIN
     Indication: NON-SMALL CELL LUNG CANCER STAGE IV
     Dosage: 450 MG
     Route: 065
     Dates: start: 20190529, end: 20190529
  9. AMLODIPINE [Concomitant]
     Active Substance: AMLODIPINE BESYLATE
     Indication: HYPERTENSION
     Route: 048
     Dates: start: 20080508
  10. SALBUTAMOL [Concomitant]
     Active Substance: ALBUTEROL
     Indication: ASTHMA
     Route: 055
     Dates: start: 20190412
  11. DANVATIRSEN [Suspect]
     Active Substance: DANVATIRSEN
     Indication: NON-SMALL CELL LUNG CANCER STAGE IV
     Dosage: 200 MG
     Route: 042
     Dates: start: 20190507, end: 20190507
  12. DANVATIRSEN [Suspect]
     Active Substance: DANVATIRSEN
     Indication: NON-SMALL CELL LUNG CANCER STAGE IV
     Dosage: 200 MG
     Route: 042
     Dates: start: 20190605, end: 20190605
  13. LORAZEPAM. [Concomitant]
     Active Substance: LORAZEPAM
     Indication: INSOMNIA
     Dosage: 0.5MG AS REQUIRED
     Route: 048
     Dates: start: 20190625
  14. DANVATIRSEN [Suspect]
     Active Substance: DANVATIRSEN
     Indication: NON-SMALL CELL LUNG CANCER STAGE IV
     Dosage: 200 MG
     Route: 042
     Dates: start: 20190430, end: 20190430
  15. DANVATIRSEN [Suspect]
     Active Substance: DANVATIRSEN
     Indication: NON-SMALL CELL LUNG CANCER STAGE IV
     Dosage: 200 MG
     Route: 042
     Dates: start: 20190504, end: 20190504
  16. DANVATIRSEN [Suspect]
     Active Substance: DANVATIRSEN
     Indication: NON-SMALL CELL LUNG CANCER STAGE IV
     Dosage: 200 MG
     Route: 042
     Dates: start: 20190514, end: 20190514
  17. DANVATIRSEN [Suspect]
     Active Substance: DANVATIRSEN
     Indication: NON-SMALL CELL LUNG CANCER STAGE IV
     Dosage: 200 MG
     Route: 042
     Dates: start: 20190529, end: 20190529
  18. DURVALUMAB. [Suspect]
     Active Substance: DURVALUMAB
     Indication: NON-SMALL CELL LUNG CANCER STAGE IV
     Dosage: 1500 MG
     Route: 042
     Dates: start: 20190801, end: 20190801
  19. CODEINE [Concomitant]
     Active Substance: CODEINE
     Indication: COUGH
     Dosage: 1 TABLET TWO TIMES A DAY
     Route: 048
     Dates: start: 20190521
  20. VITAMIN B12 [Concomitant]
     Active Substance: CYANOCOBALAMIN
     Indication: SUPPLEMENTATION THERAPY
     Dosage: 1000.0MG ONCE/SINGLE ADMINISTRATION
     Route: 030
     Dates: start: 20190702, end: 20190702
  21. DANVATIRSEN [Suspect]
     Active Substance: DANVATIRSEN
     Indication: NON-SMALL CELL LUNG CANCER STAGE IV
     Dosage: 200 MG
     Route: 042
     Dates: start: 20190702, end: 20190702
  22. DURVALUMAB. [Suspect]
     Active Substance: DURVALUMAB
     Indication: NON-SMALL CELL LUNG CANCER STAGE IV
     Dosage: 1500 MG
     Route: 042
     Dates: start: 20190619, end: 20190619
  23. CARBOPLATIN. [Suspect]
     Active Substance: CARBOPLATIN
     Indication: NON-SMALL CELL LUNG CANCER STAGE IV
     Dosage: 445 MG
     Route: 065
     Dates: start: 20190619, end: 20190619
  24. MARIJUANA [Suspect]
     Active Substance: CANNABIS SATIVA SUBSP. INDICA TOP
     Route: 065
  25. DANXAMETHASONE [Concomitant]
     Indication: PREMEDICATION
     Route: 048
     Dates: start: 20190619
  26. PEMETREXED. [Suspect]
     Active Substance: PEMETREXED
     Indication: NON-SMALL CELL LUNG CANCER STAGE IV
     Dosage: 805 MG
     Route: 065
     Dates: start: 20190529, end: 20190529
  27. CARBOPLATIN. [Suspect]
     Active Substance: CARBOPLATIN
     Indication: NON-SMALL CELL LUNG CANCER STAGE IV
     Dosage: 445 MG
     Route: 065
     Dates: start: 20190820, end: 20190820
  28. ONDANSETRON [Concomitant]
     Active Substance: ONDANSETRON
     Indication: PREMEDICATION
     Route: 048
     Dates: start: 20190619
  29. DANVATIRSEN [Suspect]
     Active Substance: DANVATIRSEN
     Indication: NON-SMALL CELL LUNG CANCER STAGE IV
     Dosage: 200 MG
     Route: 042
     Dates: start: 20190502, end: 20190502
  30. DURVALUMAB. [Suspect]
     Active Substance: DURVALUMAB
     Indication: NON-SMALL CELL LUNG CANCER STAGE IV
     Dosage: 1500 MG
     Route: 042
     Dates: start: 20190430, end: 20190430
  31. DURVALUMAB. [Suspect]
     Active Substance: DURVALUMAB
     Indication: NON-SMALL CELL LUNG CANCER STAGE IV
     Dosage: 1500 MG
     Route: 042
     Dates: start: 20190529, end: 20190529
  32. CARBOPLATIN. [Suspect]
     Active Substance: CARBOPLATIN
     Indication: NON-SMALL CELL LUNG CANCER STAGE IV
     Dosage: 445 MG
     Route: 065
     Dates: start: 20190730, end: 20190730
  33. BUDESONIDE. [Concomitant]
     Active Substance: BUDESONIDE
     Indication: ASTHMA
     Route: 055
     Dates: start: 20190412
  34. PEMETREXED. [Suspect]
     Active Substance: PEMETREXED
     Indication: NON-SMALL CELL LUNG CANCER STAGE IV
     Dosage: 815 MG
     Route: 065
     Dates: start: 20190430, end: 20190430
  35. CARBOPLATIN. [Suspect]
     Active Substance: CARBOPLATIN
     Indication: NON-SMALL CELL LUNG CANCER STAGE IV
     Dosage: 537 MG
     Route: 065
     Dates: start: 20190430, end: 20190430
  36. THEOPHYLLINE [Concomitant]
     Active Substance: THEOPHYLLINE ANHYDROUS
     Indication: CHRONIC OBSTRUCTIVE PULMONARY DISEASE
     Route: 048
     Dates: start: 20180620
  37. SIMVASTATIN. [Concomitant]
     Active Substance: SIMVASTATIN
     Indication: DYSLIPIDAEMIA
     Route: 048
     Dates: start: 20170821

REACTIONS (1)
  - Drug-induced liver injury [Recovered/Resolved]

NARRATIVE: CASE EVENT DATE: 20190709
